FAERS Safety Report 4576102-6 (Version None)
Quarter: 2005Q1

REPORT INFORMATION
  Report Type: 
  Country: None (occurrence: None)
  Receive Date: 20050204
  Receipt Date: 20050119
  Transmission Date: 20050727
  Serious: Yes (Hospitalization)
  Sender: FDA-Public Use
  Company Number: S05-FRA-00352-01

PATIENT
  Age: 46 Year
  Sex: Female

DRUGS (6)
  1. SEROPLEX (ESCITALOPRAM) [Suspect]
     Dosage: 1 TABLET QD PO
     Route: 048
     Dates: start: 20030621, end: 20030731
  2. MYOLASTAN (TETRAZEPAM) [Suspect]
     Dosage: 1 QD PO
     Route: 048
     Dates: start: 20030718, end: 20030723
  3. OMEPRAZOLE [Concomitant]
  4. ACETAMINOPHEN [Concomitant]
  5. CELEBREX [Suspect]
     Dosage: 1 RC
     Dates: start: 20030718, end: 20030723
  6. ZOLPIDEM TARTRATE [Concomitant]

REACTIONS (3)
  - DIABETES MELLITUS [None]
  - HERPES SIMPLEX [None]
  - STEVENS-JOHNSON SYNDROME [None]
